FAERS Safety Report 10027185 (Version 1)
Quarter: 2014Q1

REPORT INFORMATION
  Report Type: Spontaneous
  Country: US (occurrence: US)
  Receive Date: 20140321
  Receipt Date: 20140321
  Transmission Date: 20141002
  Serious: No
  Sender: FDA-Public Use
  Company Number: US-BAYER-2014-041488

PATIENT
  Age: 75 Year
  Sex: Female
  Weight: 66 kg

DRUGS (2)
  1. ALEVE TABLET [Suspect]
     Dosage: 2 DF, PRN
     Route: 048
     Dates: end: 20140311
  2. BAYER ASPIRIN REGIMEN ADULT LOW STRENGTH [Concomitant]

REACTIONS (3)
  - Off label use [None]
  - Dyspepsia [Recovered/Resolved]
  - Feeling abnormal [Recovered/Resolved]
